FAERS Safety Report 4312442-3 (Version None)
Quarter: 2004Q1

REPORT INFORMATION
  Report Type: 
  Country: None (occurrence: None)
  Receive Date: 20040305
  Receipt Date: 20040216
  Transmission Date: 20041129
  Serious: Yes (Other)
  Sender: FDA-Public Use
  Company Number: JP-ROCHE-359109

PATIENT
  Age: 36 Year
  Sex: Female

DRUGS (2)
  1. ROCEPHIN [Suspect]
     Indication: PERIOSTITIS
     Dosage: ROUT REPORTED AS DRIP.
     Route: 050
     Dates: start: 20040216, end: 20040216
  2. PHYSIOLOGICAL SALINE [Concomitant]
     Dosage: ADMINISTERED WITH CEFTRIAXONE.  100 CC FOR 30 MINS.

REACTIONS (1)
  - DYSPNOEA [None]
